FAERS Safety Report 9056319 (Version 1)
Quarter: 2013Q1

REPORT INFORMATION
  Report Type: Report from Study
  Country: US (occurrence: US)
  Receive Date: 20130204
  Receipt Date: 20130204
  Transmission Date: 20140127
  Serious: Yes (Hospitalization)
  Sender: FDA-Public Use
  Company Number: US-009507513-1302USA000260

PATIENT
  Age: 4 Year
  Sex: Male
  Weight: 15.4 kg

DRUGS (2)
  1. VORINOSTAT [Suspect]
     Indication: BRAIN STEM GLIOMA
     Dosage: 230 MG/M2/DOSE ON DAYS 1-5 WEEKLY
     Route: 048
     Dates: start: 20130101, end: 20130129
  2. DEXAMETHASONE [Concomitant]

REACTIONS (2)
  - Posterior reversible encephalopathy syndrome [Unknown]
  - Hyponatraemia [Unknown]
